FAERS Safety Report 7972989-5 (Version None)
Quarter: 2011Q4

REPORT INFORMATION
  Report Type: 
  Country: None (occurrence: None)
  Receive Date: 20111213
  Receipt Date: 20111209
  Transmission Date: 20120403
  Serious: Yes (Hospitalization)
  Sender: FDA-Public Use
  Company Number: JP-PFIZER INC-2011283764

PATIENT
  Age: 21 Month
  Sex: Male

DRUGS (4)
  1. PRILOSEC [Concomitant]
     Dosage: UNK
  2. MEPTIN [Concomitant]
     Dosage: UNK
  3. MUCODYNE [Concomitant]
     Dosage: UNK
  4. ALPRAZOLAM [Suspect]
     Dosage: 1/2 TABLET
     Route: 048
     Dates: start: 20111121, end: 20111121

REACTIONS (2)
  - ACCIDENTAL DRUG INTAKE BY CHILD [None]
  - GAIT DISTURBANCE [None]
